FAERS Safety Report 12615361 (Version 1)
Quarter: 2016Q3

REPORT INFORMATION
  Report Type: Spontaneous
  Country: AU (occurrence: AU)
  Receive Date: 20160802
  Receipt Date: 20160802
  Transmission Date: 20161109
  Serious: Yes (Other)
  Sender: FDA-Public Use
  Company Number: AU-HERITAGE PHARMACEUTICALS-2016HTG00185

PATIENT
  Age: 47 Year
  Sex: Female

DRUGS (1)
  1. DOXYCYCLINE. [Suspect]
     Active Substance: DOXYCYCLINE
     Indication: LYME DISEASE
     Dosage: UNK

REACTIONS (2)
  - Type IV hypersensitivity reaction [Recovered/Resolved]
  - Jarisch-Herxheimer reaction [Recovered/Resolved]
